FAERS Safety Report 16022864 (Version 1)
Quarter: 2019Q2

REPORT INFORMATION
  Report Type: Spontaneous
  Country: US (occurrence: US)
  Receive Date: 20190228
  Receipt Date: 20190228
  Transmission Date: 20190711
  Serious: Yes (Life-Threatening)
  Sender: FDA-Public Use
  Company Number: None

PATIENT
  Age: 55 Year
  Sex: Female
  Weight: 47.25 kg

DRUGS (2)
  1. COKE (ACACIA GUM, GUM ARABIC ALLERGY) [Suspect]
     Active Substance: ACACIA
  2. SYNTHROID (EXCIPIENT ACACIA GUM) [Suspect]
     Active Substance: ACACIA
     Indication: HYPOTHYROIDISM
     Dosage: ?          QUANTITY:1 TABLET(S);?
     Route: 048
     Dates: start: 20090401, end: 20190221

REACTIONS (5)
  - Throat tightness [None]
  - Anaphylactic reaction [None]
  - Weight decreased [None]
  - Food allergy [None]
  - Abdominal pain upper [None]

NARRATIVE: CASE EVENT DATE: 20190220
